FAERS Safety Report 19802581 (Version 1)
Quarter: 2021Q3

REPORT INFORMATION
  Report Type: Spontaneous
  Country: US (occurrence: US)
  Receive Date: 20210908
  Receipt Date: 20210908
  Transmission Date: 20211014
  Serious: No
  Sender: FDA-Public Use
  Company Number: None

PATIENT
  Age: 69 Year
  Sex: Female
  Weight: 49.5 kg

DRUGS (9)
  1. LYZINE [Concomitant]
  2. DAILY VITAMIN [Concomitant]
     Active Substance: VITAMINS
  3. BIOTIN [Concomitant]
     Active Substance: BIOTIN
  4. TURMIC [Concomitant]
  5. NEUTROGENA CLEAR PORE CLEANSER MASK [Suspect]
     Active Substance: BENZOYL PEROXIDE
     Indication: PRODUCT USED FOR UNKNOWN INDICATION
     Route: 061
  6. VITAMIN D [Concomitant]
     Active Substance: VITAMIN D NOS
  7. METHIMAZOLE. [Concomitant]
     Active Substance: METHIMAZOLE
  8. CALCIUM [Concomitant]
     Active Substance: CALCIUM
  9. VITAMIN B12 [Concomitant]
     Active Substance: CYANOCOBALAMIN

REACTIONS (3)
  - Erythema [None]
  - Burning sensation [None]
  - Skin tightness [None]

NARRATIVE: CASE EVENT DATE: 20210907
